FAERS Safety Report 4331583-8 (Version None)
Quarter: 2004Q1

REPORT INFORMATION
  Report Type: 
  Country: None (occurrence: None)
  Receive Date: 20040329
  Receipt Date: 20040322
  Transmission Date: 20041129
  Serious: Yes (Death, Life-Threatening)
  Sender: FDA-Public Use
  Company Number: PERC20040016

PATIENT
  Age: 41 Year
  Sex: Male

DRUGS (1)
  1. PERCOCET [Suspect]
     Dates: end: 20030601

REACTIONS (1)
  - DRUG TOXICITY [None]
